FAERS Safety Report 25674008 (Version 2)
Quarter: 2025Q3

REPORT INFORMATION
  Report Type: Spontaneous
  Country: US (occurrence: US)
  Receive Date: 20250813
  Receipt Date: 20250828
  Transmission Date: 20251020
  Serious: Yes (Life-Threatening, Hospitalization)
  Sender: TEVA
  Company Number: US-TEVA-VS-3360123

PATIENT
  Age: 71 Year
  Sex: Female

DRUGS (7)
  1. EPINEPHRINE [Suspect]
     Active Substance: EPINEPHRINE
     Indication: Anaphylactic reaction
     Route: 065
  2. VANCOMYCIN [Suspect]
     Active Substance: VANCOMYCIN
     Indication: Antibiotic therapy
     Route: 042
  3. SODIUM CHLORIDE [Suspect]
     Active Substance: SODIUM CHLORIDE
     Indication: Anaphylactic reaction
     Route: 065
  4. DEXAMETHASONE [Suspect]
     Active Substance: DEXAMETHASONE
     Indication: Anaphylactic reaction
     Route: 042
  5. CEFAZOLIN [Suspect]
     Active Substance: CEFAZOLIN
     Indication: Antibiotic therapy
     Route: 042
  6. DIPHENHYDRAMINE HYDROCHLORIDE [Suspect]
     Active Substance: DIPHENHYDRAMINE HYDROCHLORIDE
     Indication: Anaphylactic reaction
     Route: 042
  7. DEVICE [Suspect]
     Active Substance: DEVICE
     Route: 065

REACTIONS (6)
  - Anaphylactic reaction [Recovering/Resolving]
  - Drug ineffective [Unknown]
  - Angioedema [Recovering/Resolving]
  - Dyspnoea [Recovering/Resolving]
  - Hypotension [Recovering/Resolving]
  - Hypoxia [Recovering/Resolving]
